FAERS Safety Report 17987621 (Version 1)
Quarter: 2020Q3

REPORT INFORMATION
  Report Type: Spontaneous
  Country: US (occurrence: US)
  Receive Date: 20200707
  Receipt Date: 20200707
  Transmission Date: 20201103
  Serious: Yes (Other)
  Sender: FDA-Public Use
  Company Number: US-JNJFOC-20200703639

PATIENT
  Sex: Female

DRUGS (1)
  1. CHILDRENS BENADRYL CHEWABLES [Suspect]
     Active Substance: DIPHENHYDRAMINE HYDROCHLORIDE
     Indication: HYPERSENSITIVITY
     Dosage: 2 TABLETS
     Route: 048

REACTIONS (1)
  - Blood glucose increased [Unknown]
